FAERS Safety Report 7727152-X (Version None)
Quarter: 2011Q3

REPORT INFORMATION
  Report Type: 
  Country: None (occurrence: None)
  Receive Date: 20110902
  Receipt Date: 20110823
  Transmission Date: 20111222
  Serious: Yes (Other)
  Sender: FDA-Public Use
  Company Number: JP-PFIZER INC-2011203063

PATIENT
  Age: 71 Year
  Sex: Female

DRUGS (32)
  1. AMIODARONE HCL [Suspect]
     Dosage: 200 MG DAILY
     Dates: start: 20100405, end: 20100413
  2. AMIODARONE HCL [Suspect]
     Dosage: 100 MG DAILY
     Dates: start: 20110516, end: 20110601
  3. AMIODARONE HCL [Suspect]
     Dosage: 100 MG, UNK
     Dates: start: 20090912, end: 20091031
  4. AMIODARONE HCL [Suspect]
     Dosage: 200 MG, DAILY
     Dates: start: 20091111, end: 20091122
  5. AMIODARONE HCL [Suspect]
     Dosage: 200 MG DAILY
     Dates: start: 20100310, end: 20100314
  6. AMIODARONE HCL [Suspect]
     Dosage: 100 MG, UNK
     Dates: start: 20101110, end: 20101224
  7. AMIODARONE HCL [Suspect]
     Dosage: 100 MG DAILY
     Dates: start: 20110224, end: 20110403
  8. AMIODARONE HCL [Suspect]
     Dosage: 100 MG DAILY
     Dates: start: 20100315, end: 20100404
  9. AMIODARONE HCL [Suspect]
     Dosage: 200 MG DAILY
     Dates: start: 20100609, end: 20100610
  10. AMIODARONE HCL [Suspect]
     Dosage: 200 MG DAILY
     Dates: start: 20100716, end: 20100724
  11. AMIODARONE HCL [Suspect]
     Dosage: 100 MG DAILY
     Dates: start: 20110131, end: 20110222
  12. AMIODARONE HCL [Suspect]
     Dosage: 200 MG, UNK
     Dates: start: 20100213, end: 20100213
  13. AMIODARONE HCL [Suspect]
     Dosage: 100 MG DAILY
     Dates: start: 20100414, end: 20100608
  14. AMIODARONE HCL [Suspect]
     Dosage: 200 MG DAILY
     Dates: start: 20100726, end: 20100814
  15. AMIODARONE HCL [Suspect]
     Dosage: 100 MG DAILY
     Dates: start: 20091123, end: 20100212
  16. AMIODARONE HCL [Suspect]
     Dosage: 100 MG DAILY
     Dates: start: 20100214, end: 20100309
  17. AMIODARONE HCL [Suspect]
     Dosage: 100 MG DAILY
     Dates: start: 20100630, end: 20100715
  18. AMIODARONE HCL [Suspect]
     Dosage: 200 MG, UNK
     Dates: start: 20110404, end: 20110404
  19. AMIODARONE HCL [Suspect]
     Dosage: 200 MG DAILY
     Dates: start: 20110425, end: 20110515
  20. AMIODARONE HCL [Suspect]
     Indication: ATRIAL FIBRILLATION
     Dosage: 100 MG DAILY
     Dates: start: 20090814, end: 20090904
  21. AMIODARONE HCL [Suspect]
     Dosage: 100 MG, UNK
     Dates: start: 20100611, end: 20100614
  22. AMIODARONE HCL [Suspect]
     Dosage: 200 MG DAILY
     Dates: start: 20100615, end: 20100629
  23. AMIODARONE HCL [Suspect]
     Dosage: 100 MG DAILY
     Dates: start: 20110405, end: 20110424
  24. AMIODARONE HCL [Suspect]
     Dosage: 200 MG DAILY
     Dates: start: 20090907, end: 20090911
  25. AMIODARONE HCL [Suspect]
     Dosage: 100 MG DAILY
     Dates: start: 20100725, end: 20100725
  26. AMIODARONE HCL [Suspect]
     Dosage: 200 MG DAILY
     Dates: start: 20101108, end: 20101109
  27. AMIODARONE HCL [Suspect]
     Dosage: 200 MG, UNK
     Dates: start: 20110223, end: 20110223
  28. CARVEDILOL [Concomitant]
     Indication: CARDIAC DISORDER
  29. AMIODARONE HCL [Suspect]
     Indication: VENTRICULAR TACHYCARDIA
     Dosage: 300 MG DAILY
     Dates: start: 20090905, end: 20090906
  30. AMIODARONE HCL [Suspect]
     Dosage: 100 MG DAILY
     Dates: start: 20100815, end: 20101107
  31. AMIODARONE HCL [Suspect]
     Dosage: 200 MG DAILY
     Dates: start: 20101225, end: 20110130
  32. AMIODARONE HCL [Suspect]
     Dosage: UNK

REACTIONS (2)
  - HEPATIC STEATOSIS [None]
  - BLOOD BILIRUBIN INCREASED [None]
